FAERS Safety Report 11203473 (Version 3)
Quarter: 2015Q2

REPORT INFORMATION
  Report Type: Spontaneous
  Country: CA (occurrence: CA)
  Receive Date: 20150619
  Receipt Date: 20150630
  Transmission Date: 20150821
  Serious: Yes (Other)
  Sender: FDA-Public Use
  Company Number: CA-ASTRAZENECA-2015SE59016

PATIENT
  Age: 55 Year
  Sex: Female

DRUGS (5)
  1. METHOTREXATE [Concomitant]
     Active Substance: METHOTREXATE
     Dates: start: 201411
  2. CELEBREX [Concomitant]
     Active Substance: CELECOXIB
  3. ATIVAN [Concomitant]
     Active Substance: LORAZEPAM
  4. LOSEC [Suspect]
     Active Substance: OMEPRAZOLE
     Route: 048
  5. LYRICA [Concomitant]
     Active Substance: PREGABALIN

REACTIONS (11)
  - Musculoskeletal pain [Unknown]
  - Abasia [Unknown]
  - Ankle fracture [Unknown]
  - Pain in extremity [Unknown]
  - Back pain [Unknown]
  - Bursitis [Unknown]
  - Rheumatoid arthritis [Unknown]
  - Limb deformity [Unknown]
  - Local swelling [Unknown]
  - Rotator cuff syndrome [Unknown]
  - Impaired work ability [Unknown]

NARRATIVE: CASE EVENT DATE: 201403
